FAERS Safety Report 7315768-4 (Version None)
Quarter: 2011Q1

REPORT INFORMATION
  Report Type: 
  Country: None (occurrence: None)
  Receive Date: 20110217
  Receipt Date: 20110217
  Transmission Date: 20110831
  Serious: Yes (Other)
  Sender: FDA-Public Use
  Company Number: None

PATIENT
  Age: 65 Year
  Sex: Female
  Weight: 54.4316 kg

DRUGS (7)
  1. PSEUDOPHED [Concomitant]
  2. MORPHINE [Concomitant]
  3. SYNTHROID [Concomitant]
  4. PROPANTHELINE (SALIVA) [Concomitant]
  5. LEVAQUIN [Suspect]
     Indication: CELLULITIS
     Dosage: IV
     Route: 042
     Dates: start: 20110203, end: 20110205
  6. LEVAQUIN [Suspect]
     Indication: CYSTITIS
     Dosage: IV
     Route: 042
     Dates: start: 20110203, end: 20110205
  7. PROPRANOLOL [Concomitant]

REACTIONS (3)
  - URINARY INCONTINENCE [None]
  - MOVEMENT DISORDER [None]
  - BEDRIDDEN [None]
